FAERS Safety Report 9319813 (Version 1)
Quarter: 2013Q1

REPORT INFORMATION
  Report Type: Spontaneous
  Country: FR (occurrence: None)
  Receive Date: 20121128
  Receipt Date: 20121128
  Transmission Date: 20140127
  Serious: Yes (Other)
  Sender: FDA-Public Use
  Company Number: 215557

PATIENT
  Sex: Male

DRUGS (2)
  1. INNOHEP [Suspect]
     Indication: PHLEBITIS
     Route: 058
  2. CHEMOTHERAPY (CHEMOTHERAPEUTICS NOS) [Concomitant]

REACTIONS (3)
  - Off label use [None]
  - Phlebitis [None]
  - Disease recurrence [None]
